FAERS Safety Report 24389912 (Version 2)
Quarter: 2024Q4

REPORT INFORMATION
  Report Type: Spontaneous
  Country: US (occurrence: US)
  Receive Date: 20241003
  Receipt Date: 20241009
  Transmission Date: 20250114
  Serious: Yes (Death, Life-Threatening, Hospitalization, Other)
  Sender: SANOFI AVENTIS
  Company Number: US-MLMSERVICE-20240923-PI202041-00177-1

PATIENT
  Age: 26 Year
  Sex: Male

DRUGS (4)
  1. HYDROCORTISONE [Suspect]
     Active Substance: HYDROCORTISONE
     Indication: Adrenal insufficiency
     Dosage: 20 MG
  2. PYRIMETHAMINE [Concomitant]
     Active Substance: PYRIMETHAMINE
     Indication: Adrenal insufficiency
     Dosage: UNK
  3. ATOVAQUONE [Concomitant]
     Active Substance: ATOVAQUONE
     Indication: Adrenal insufficiency
     Dosage: UNK
  4. LEUCOVORIN [Concomitant]
     Active Substance: LEUCOVORIN\LEUCOVORIN CALCIUM
     Indication: Adrenal insufficiency
     Dosage: UNK

REACTIONS (10)
  - Kaposi^s sarcoma [Fatal]
  - Disease progression [Fatal]
  - Respiratory failure [Fatal]
  - Chest pain [Fatal]
  - Tachycardia [Fatal]
  - Pulmonary mass [Fatal]
  - Pneumonia [Fatal]
  - Haemoptysis [Fatal]
  - Oesophageal candidiasis [Fatal]
  - Odynophagia [Fatal]
